FAERS Safety Report 9239561 (Version 1)
Quarter: 2013Q2

REPORT INFORMATION
  Report Type: Spontaneous
  Country: US (occurrence: US)
  Receive Date: 20130418
  Receipt Date: 20130418
  Transmission Date: 20140414
  Serious: No
  Sender: FDA-Public Use
  Company Number: US-SANOFI-AVENTIS-2012SA087568

PATIENT
  Age: 49 Year
  Sex: Female
  Weight: 64 kg

DRUGS (1)
  1. LOVENOX [Suspect]
     Indication: HIP ARTHROPLASTY
     Dosage: PRODUCT START DATE MENTIONED AS ~SINCE 30 NOV 2012
     Route: 065
     Dates: start: 201211

REACTIONS (3)
  - Feeling abnormal [Unknown]
  - Somnolence [Unknown]
  - Nausea [Unknown]
